FAERS Safety Report 7964928-8 (Version None)
Quarter: 2011Q4

REPORT INFORMATION
  Report Type: 
  Country: None (occurrence: None)
  Receive Date: 20111208
  Receipt Date: 20111208
  Transmission Date: 20120403
  Serious: Yes (Other)
  Sender: FDA-Public Use
  Company Number: None

PATIENT
  Age: 19 Year
  Sex: Female
  Weight: 63.502 kg

DRUGS (1)
  1. SEASONIQUE [Suspect]
     Indication: CONTRACEPTION
     Dosage: DAILY
     Dates: start: 20110601, end: 20111015

REACTIONS (5)
  - DIZZINESS [None]
  - FATIGUE [None]
  - SYNCOPE [None]
  - MOOD SWINGS [None]
  - HEADACHE [None]
